FAERS Safety Report 9778569 (Version 1)
Quarter: 2013Q4

REPORT INFORMATION
  Report Type: Spontaneous
  Country: US (occurrence: US)
  Receive Date: 20131223
  Receipt Date: 20131223
  Transmission Date: 20140711
  Serious: Yes (Other)
  Sender: FDA-Public Use
  Company Number: CHPA2013US018535

PATIENT
  Age: 50 Year
  Sex: Female

DRUGS (3)
  1. PRIVATE LABEL [Suspect]
     Indication: SMOKING CESSATION THERAPY
     Dosage: 21 MG, ONCE/SINGLE
     Route: 062
     Dates: start: 201005, end: 201005
  2. PRIVATE LABEL [Suspect]
     Dosage: 14 MG, UNK
     Route: 062
     Dates: start: 2010, end: 2010
  3. PRIVATE LABEL [Suspect]
     Dosage: 7 MG, UNK
     Route: 062
     Dates: start: 2010, end: 2010

REACTIONS (5)
  - Lower limb fracture [Not Recovered/Not Resolved]
  - Nightmare [Unknown]
  - Application site rash [Recovered/Resolved]
  - Nausea [Recovered/Resolved]
  - Incorrect drug administration duration [Unknown]
